FAERS Safety Report 6176986-4 (Version None)
Quarter: 2009Q2

REPORT INFORMATION
  Report Type: 
  Country: None (occurrence: None)
  Receive Date: 20090501
  Receipt Date: 20090422
  Transmission Date: 20091009
  Serious: Yes (Hospitalization)
  Sender: FDA-Public Use
  Company Number: DE-ABBOTT-09P-062-0569512-00

PATIENT
  Sex: Female
  Weight: 55 kg

DRUGS (3)
  1. KLACID TABLETS [Suspect]
     Indication: SUICIDE ATTEMPT
     Dosage: 10 TABLETS AT ONCE
     Route: 048
     Dates: start: 20090422, end: 20090422
  2. NOVALGIN [Suspect]
     Indication: SUICIDE ATTEMPT
     Dosage: 10 TABLETS ONCE
     Route: 048
     Dates: start: 20090422, end: 20090422
  3. TETRAZEPAM [Suspect]
     Indication: SUICIDE ATTEMPT
     Dosage: 10 TABLETS ONCE
     Route: 048
     Dates: start: 20090422, end: 20090422

REACTIONS (2)
  - SUICIDE ATTEMPT [None]
  - TACHYCARDIA [None]
